FAERS Safety Report 7985773-3 (Version None)
Quarter: 2011Q4

REPORT INFORMATION
  Report Type: 
  Country: None (occurrence: None)
  Receive Date: 20111214
  Receipt Date: 20111128
  Transmission Date: 20120403
  Serious: Yes (Hospitalization)
  Sender: FDA-Public Use
  Company Number: WAES 1103USA00488B1

PATIENT
  Sex: Female

DRUGS (17)
  1. ISENTRESS [Suspect]
     Indication: HIV INFECTION
     Dosage: 400 MG/BID, TRANSPLACENTAL
     Route: 064
     Dates: start: 20090721, end: 20091211
  2. ISENTRESS [Suspect]
     Indication: HIV INFECTION
     Dosage: 400 MG/BID, TRANSPLACENTAL
     Route: 064
     Dates: start: 20090618, end: 20090717
  3. ISENTRESS [Suspect]
     Indication: HIV INFECTION
     Dosage: 400 MG/BID, TRANSPLACENTAL
     Route: 064
     Dates: start: 20101119, end: 20110228
  4. ISENTRESS [Suspect]
     Indication: HIV INFECTION
     Dosage: 400 MG/BID, TRANSPLACENTAL
     Route: 064
     Dates: start: 20091213, end: 20100516
  5. ISENTRESS [Suspect]
     Indication: HIV INFECTION
     Dosage: 400 MG/BID, TRANSPLACENTAL
     Route: 064
     Dates: start: 20100618, end: 20101117
  6. ISENTRESS [Suspect]
     Indication: HIV INFECTION
     Dosage: 400 MG/BID, TRANSPLACENTAL
     Route: 064
     Dates: start: 20100518, end: 20100616
  7. TRIPHASIL-21 [Concomitant]
  8. PLACEBO [Suspect]
     Indication: VERTICAL INFECTION TRANSMISSION
     Dates: start: 20100618, end: 20101117
  9. PLACEBO [Suspect]
     Indication: VERTICAL INFECTION TRANSMISSION
     Dates: start: 20090618, end: 20090717
  10. PLACEBO [Suspect]
     Indication: VERTICAL INFECTION TRANSMISSION
     Dates: start: 20090721, end: 20091211
  11. PLACEBO [Suspect]
     Indication: VERTICAL INFECTION TRANSMISSION
     Dates: start: 20091213, end: 20100616
  12. PLACEBO [Suspect]
     Indication: VERTICAL INFECTION TRANSMISSION
     Dates: start: 20101119, end: 20110228
  13. TRUVADA [Suspect]
     Dosage: 1 TAB/DAILY
     Dates: start: 20090618, end: 20090717
  14. TRUVADA [Suspect]
     Dosage: 1 TAB/DAILY
     Dates: start: 20090721, end: 20091211
  15. TRUVADA [Suspect]
     Dosage: 1 TAB/DAILY
     Dates: start: 20091213, end: 20100616
  16. TRUVADA [Suspect]
     Dosage: 1 TAB/DAILY
     Dates: start: 20101119, end: 20110228
  17. TRUVADA [Suspect]
     Dosage: 1 TAB/DAILY
     Dates: start: 20100618, end: 20101117

REACTIONS (2)
  - JAUNDICE NEONATAL [None]
  - MATERNAL DRUGS AFFECTING FOETUS [None]
